FAERS Safety Report 13188151 (Version 1)
Quarter: 2017Q1

REPORT INFORMATION
  Report Type: Spontaneous
  Country: US (occurrence: US)
  Receive Date: 20170203
  Receipt Date: 20170203
  Transmission Date: 20170428
  Serious: No
  Sender: FDA-Public Use
  Company Number: None

PATIENT
  Age: 34 Year
  Sex: Female
  Weight: 55.8 kg

DRUGS (5)
  1. MOTHERS MILK TEA [Concomitant]
  2. EMERGEN-C VITAMIN SUPPLEMENTS [Concomitant]
  3. TIZANIDINE 4MG TABS DR. REDDY^S [Suspect]
     Active Substance: TIZANIDINE
     Indication: MUSCLE STRAIN
     Dosage: ?          QUANTITY:1 TABLET(S);?
     Route: 048
     Dates: start: 20170130, end: 20170131
  4. TRAMADOL HCL [Suspect]
     Active Substance: TRAMADOL HYDROCHLORIDE
     Indication: MUSCLE STRAIN
     Dosage: ?          QUANTITY:1 TABLET(S);?
     Route: 048
     Dates: start: 20170130, end: 20170131
  5. PRENATAL VITAMINS WITH DHA AND IRON [Concomitant]

REACTIONS (14)
  - Sleep disorder [None]
  - Syncope [None]
  - Tremor [None]
  - Hyperhidrosis [None]
  - Migraine [None]
  - Dizziness [None]
  - Vomiting [None]
  - Back pain [None]
  - Drug ineffective [None]
  - Feeling hot [None]
  - Nausea [None]
  - Headache [None]
  - Asthenia [None]
  - Pain [None]

NARRATIVE: CASE EVENT DATE: 20170131
